FAERS Safety Report 21037328 (Version 1)
Quarter: 2022Q3

REPORT INFORMATION
  Report Type: Other
  Country: DE (occurrence: None)
  Receive Date: 20220703
  Receipt Date: 20220703
  Transmission Date: 20221027
  Serious: No
  Sender: FDA-Public Use
  Company Number: DE-ROCHE-3128775

PATIENT
  Age: 52 Year
  Sex: Male
  Weight: 85 kg

DRUGS (14)
  1. OCRELIZUMAB [Suspect]
     Active Substance: OCRELIZUMAB
     Indication: Relapsing multiple sclerosis
     Route: 042
     Dates: start: 20180626, end: 20180710
  2. OCRELIZUMAB [Suspect]
     Active Substance: OCRELIZUMAB
     Route: 042
     Dates: start: 20190115
  3. PREDNISOLONE [Concomitant]
     Active Substance: PREDNISOLONE
     Indication: Prophylaxis
     Route: 042
     Dates: start: 20190115, end: 20190115
  4. PREDNISOLONE [Concomitant]
     Active Substance: PREDNISOLONE
     Route: 042
     Dates: start: 20180710, end: 20180710
  5. PREDNISOLONE [Concomitant]
     Active Substance: PREDNISOLONE
     Route: 042
     Dates: start: 20180626, end: 20180626
  6. RANITIDINE HYDROCHLORIDE [Concomitant]
     Active Substance: RANITIDINE HYDROCHLORIDE
     Indication: Prophylaxis
     Route: 048
     Dates: start: 20190114, end: 20190116
  7. RANITIDINE HYDROCHLORIDE [Concomitant]
     Active Substance: RANITIDINE HYDROCHLORIDE
     Route: 048
     Dates: start: 20180625, end: 20180627
  8. RANITIDINE HYDROCHLORIDE [Concomitant]
     Active Substance: RANITIDINE HYDROCHLORIDE
     Route: 048
     Dates: start: 20180709, end: 20180711
  9. EBASTINE [Concomitant]
     Active Substance: EBASTINE
     Indication: Prophylaxis
     Route: 048
     Dates: start: 20180625, end: 20180627
  10. EBASTINE [Concomitant]
     Active Substance: EBASTINE
     Route: 048
     Dates: start: 20190114, end: 20190116
  11. EBASTINE [Concomitant]
     Active Substance: EBASTINE
     Route: 048
     Dates: start: 20180709, end: 20180711
  12. PREGABALIN [Concomitant]
     Active Substance: PREGABALIN
     Indication: Prophylaxis
     Dates: start: 20211209
  13. MIRTAZAPINE [Concomitant]
     Active Substance: MIRTAZAPINE
     Route: 048
     Dates: start: 20180215, end: 201904
  14. MIRTAZAPINE [Concomitant]
     Active Substance: MIRTAZAPINE
     Dosage: DEFINITION OF THE INTERVAL: AS REQUIRED
     Dates: start: 2019

REACTIONS (1)
  - COVID-19 [Recovered/Resolved]

NARRATIVE: CASE EVENT DATE: 20211201
